FAERS Safety Report 4715753-2 (Version None)
Quarter: 2005Q3

REPORT INFORMATION
  Report Type: 
  Country: None (occurrence: None)
  Receive Date: 20050715
  Receipt Date: 20050509
  Transmission Date: 20060218
  Serious: Yes (Hospitalization)
  Sender: FDA-Public Use
  Company Number: DL2005155

PATIENT
  Sex: Female

DRUGS (2)
  1. MIFEPRISTONE TABLETS, 200 MG (DANCO LABS) [Suspect]
     Indication: ABORTION INDUCED
     Dosage: 200 MG , ORAL
     Route: 048
     Dates: start: 20050428
  2. MISOPROSTOL [Suspect]
     Dosage: 800 MCG, VAGINAL
     Route: 067
     Dates: start: 20050429

REACTIONS (4)
  - ANAEMIA [None]
  - DIZZINESS [None]
  - HAEMORRHAGE [None]
  - HYPOTENSION [None]
